FAERS Safety Report 6017967-0 (Version None)
Quarter: 2008Q4

REPORT INFORMATION
  Report Type: 
  Country: None (occurrence: None)
  Receive Date: 20081223
  Receipt Date: 20081222
  Transmission Date: 20090506
  Serious: Yes (Hospitalization)
  Sender: FDA-Public Use
  Company Number: US-ASTRAZENECA-2008UW28510

PATIENT
  Age: 71 Year
  Sex: Female

DRUGS (1)
  1. TOPROL-XL [Suspect]
     Route: 048
     Dates: start: 20070101

REACTIONS (2)
  - CEREBROVASCULAR ACCIDENT [None]
  - HYPERTENSION [None]
